FAERS Safety Report 19052393 (Version 1)
Quarter: 2021Q1

REPORT INFORMATION
  Report Type: Spontaneous
  Country: US (occurrence: US)
  Receive Date: 20210324
  Receipt Date: 20210324
  Transmission Date: 20210420
  Serious: Yes (Other)
  Sender: FDA-Public Use
  Company Number: US-CELLTRION INC.-2020US027937

PATIENT

DRUGS (2)
  1. PREDNISONE. [Suspect]
     Active Substance: PREDNISONE
     Indication: CARDIAC SARCOIDOSIS
     Dosage: DECREASED FROM TIME OF TNF ALPHA INHIBITOR INITIATION/DECREASED BY 5?10 MG APPROXIMATELY EVERY 4 WEE
  2. INFLIXIMAB (UNKNOWN) [Suspect]
     Active Substance: INFLIXIMAB
     Indication: CARDIAC SARCOIDOSIS
     Dosage: WEIGHT?BASED DOSING IN A STANDARD DOSING FREQUENCY
     Route: 042

REACTIONS (4)
  - Drug effective for unapproved indication [Unknown]
  - Metapneumovirus infection [Unknown]
  - Pneumonia [Unknown]
  - Off label use [Unknown]
